FAERS Safety Report 19313646 (Version 1)
Quarter: 2021Q2

REPORT INFORMATION
  Report Type: Spontaneous
  Country: CA (occurrence: CA)
  Receive Date: 20210527
  Receipt Date: 20210527
  Transmission Date: 20210717
  Serious: Yes (Hospitalization, Disabling)
  Sender: FDA-Public Use
  Company Number: CA-TEVA-2021-CA-1914347

PATIENT
  Age: 8 Year
  Sex: Female

DRUGS (4)
  1. QUETIAPINE. [Suspect]
     Active Substance: QUETIAPINE
     Indication: OPPOSITIONAL DEFIANT DISORDER
     Dosage: 50 MILLIGRAM DAILY;
     Route: 048
  2. CONCERTA [Suspect]
     Active Substance: METHYLPHENIDATE HYDROCHLORIDE
     Indication: ATTENTION DEFICIT HYPERACTIVITY DISORDER
     Dosage: 18 MILLIGRAM DAILY;
     Route: 048
  3. LAMOTRIGINE. [Concomitant]
     Active Substance: LAMOTRIGINE
     Route: 048
  4. VALPROIC ACID. [Concomitant]
     Active Substance: VALPROIC ACID

REACTIONS (5)
  - Gait inability [Unknown]
  - Toxicity to various agents [Unknown]
  - Extrapyramidal disorder [Unknown]
  - Dyskinesia [Unknown]
  - Tremor [Unknown]
